FAERS Safety Report 18889218 (Version 1)
Quarter: 2021Q1

REPORT INFORMATION
  Report Type: Spontaneous
  Country: CN (occurrence: CN)
  Receive Date: 20210212
  Receipt Date: 20210212
  Transmission Date: 20210420
  Serious: Yes (Disabling)
  Sender: FDA-Public Use
  Company Number: CN-ASTRAZENECA-2021A049045

PATIENT
  Age: 24024 Day
  Sex: Female
  Weight: 56.5 kg

DRUGS (9)
  1. ROSUVASTATIN CALCIUM. [Suspect]
     Active Substance: ROSUVASTATIN CALCIUM
     Indication: ACUTE CORONARY SYNDROME
     Route: 048
     Dates: start: 20210108, end: 20210117
  2. PANTOLOC [Suspect]
     Active Substance: PANTOPRAZOLE SODIUM
     Indication: ACUTE CORONARY SYNDROME
     Route: 048
     Dates: start: 20210108, end: 20210120
  3. ASPIRIN. [Concomitant]
     Active Substance: ASPIRIN
     Indication: ACUTE CORONARY SYNDROME
     Route: 048
     Dates: start: 20210108, end: 20210120
  4. LOW?MOLECULAR?WEIGHT HEPARIN CALCIUM INJECTION [Concomitant]
     Active Substance: HEPARIN CALCIUM
     Indication: ANTICOAGULANT THERAPY
     Dosage: 4100.0 UNITS BID
     Route: 058
     Dates: start: 20210108, end: 20210113
  5. BRILINTA [Suspect]
     Active Substance: TICAGRELOR
     Indication: ANTIPLATELET THERAPY
     Route: 048
     Dates: start: 20210108, end: 20210120
  6. LOW?MOLECULAR?WEIGHT HEPARIN CALCIUM INJECTION [Concomitant]
     Active Substance: HEPARIN CALCIUM
     Indication: ACUTE CORONARY SYNDROME
     Dosage: 4100.0 UNITS BID
     Route: 058
     Dates: start: 20210108, end: 20210113
  7. ROSUVASTATIN CALCIUM. [Suspect]
     Active Substance: ROSUVASTATIN CALCIUM
     Indication: DYSLIPIDAEMIA
     Route: 048
     Dates: start: 20210108, end: 20210117
  8. BRILINTA [Suspect]
     Active Substance: TICAGRELOR
     Indication: ACUTE CORONARY SYNDROME
     Route: 048
     Dates: start: 20210108, end: 20210120
  9. PANTOLOC [Suspect]
     Active Substance: PANTOPRAZOLE SODIUM
     Indication: GASTRITIS PROPHYLAXIS
     Route: 048
     Dates: start: 20210108, end: 20210120

REACTIONS (1)
  - Hepatic function abnormal [Recovering/Resolving]

NARRATIVE: CASE EVENT DATE: 20210115
